FAERS Safety Report 16182292 (Version 13)
Quarter: 2020Q3

REPORT INFORMATION
  Report Type: Spontaneous
  Country: CA (occurrence: CA)
  Receive Date: 20190411
  Receipt Date: 20200817
  Transmission Date: 20201102
  Serious: Yes (Other)
  Sender: FDA-Public Use
  Company Number: CA-CELLTRION INC.-2017CA017596

PATIENT

DRUGS (29)
  1. INFLECTRA [Suspect]
     Active Substance: INFLIXIMAB-DYYB
     Dosage: 415 MG, EVERY 6 WEEKS
     Route: 042
     Dates: start: 20190129
  2. INFLECTRA [Suspect]
     Active Substance: INFLIXIMAB-DYYB
     Dosage: 415 MG, EVERY 6 WEEKS
     Route: 042
     Dates: start: 20190423
  3. INFLECTRA [Suspect]
     Active Substance: INFLIXIMAB-DYYB
     Dosage: 415 MG, EVERY 6 WEEKS
     Route: 042
     Dates: start: 20200102
  4. INFLECTRA [Suspect]
     Active Substance: INFLIXIMAB-DYYB
     Dosage: 400 MG (4.88 MG/KG), UNK
     Route: 042
     Dates: start: 20171212
  5. DIMENHYDRINATE. [Concomitant]
     Active Substance: DIMENHYDRINATE
     Dosage: 50 MG, UNK
     Dates: start: 20200805, end: 20200805
  6. INFLECTRA [Suspect]
     Active Substance: INFLIXIMAB-DYYB
     Dosage: 415 MG EVERY 6 WEEKS
     Route: 042
     Dates: start: 20181218
  7. INFLECTRA [Suspect]
     Active Substance: INFLIXIMAB-DYYB
     Dosage: 415 MG, EVERY 6 WEEKS
     Route: 042
     Dates: start: 20191008
  8. INFLECTRA [Suspect]
     Active Substance: INFLIXIMAB-DYYB
     Dosage: 415 MG, EVERY 6 WEEKS
     Route: 042
     Dates: start: 20200513
  9. INFLECTRA [Suspect]
     Active Substance: INFLIXIMAB-DYYB
     Dosage: 415 MG, EVERY 6 WEEKS
     Route: 042
     Dates: start: 20200805
  10. HYDROCORTISONE. [Concomitant]
     Active Substance: HYDROCORTISONE
     Dosage: 100 MG
     Dates: start: 20200805, end: 20200805
  11. INFLECTRA [Suspect]
     Active Substance: INFLIXIMAB-DYYB
     Dosage: UNK
     Route: 042
     Dates: start: 20180814, end: 20181106
  12. INFLECTRA [Suspect]
     Active Substance: INFLIXIMAB-DYYB
     Dosage: 415 MG, EVERY 6 WEEKS
     Route: 042
     Dates: start: 20190605
  13. INFLECTRA [Suspect]
     Active Substance: INFLIXIMAB-DYYB
     Dosage: 415 MG, EVERY 6 WEEKS
     Route: 042
     Dates: start: 20191006
  14. INFLECTRA [Suspect]
     Active Substance: INFLIXIMAB-DYYB
     Dosage: 415 MG, EVERY 6 WEEKS
     Route: 042
     Dates: start: 20200624
  15. ASACOL [Concomitant]
     Active Substance: MESALAMINE
     Dosage: 800 MG (2?3 TABS BID)
     Route: 048
     Dates: start: 201305
  16. INFLECTRA [Suspect]
     Active Substance: INFLIXIMAB-DYYB
     Dosage: UNK
     Route: 042
     Dates: start: 20180703
  17. INFLECTRA [Suspect]
     Active Substance: INFLIXIMAB-DYYB
     Dosage: 415 MG, EVERY 6 WEEKS
     Route: 042
     Dates: start: 20191119
  18. INFLECTRA [Suspect]
     Active Substance: INFLIXIMAB-DYYB
     Dosage: 415 MG, EVERY 6 WEEKS
     Route: 042
     Dates: start: 20200401
  19. HYDROCORTISONE. [Concomitant]
     Active Substance: HYDROCORTISONE
     Indication: PREMEDICATION
     Dosage: 100 (UNIT UNKNOWN)
     Route: 042
     Dates: start: 20180703
  20. DIMENHYDRINATE. [Concomitant]
     Active Substance: DIMENHYDRINATE
     Indication: PREMEDICATION
     Dosage: 50 MG, UNK
     Route: 048
     Dates: start: 20180703
  21. INFLECTRA [Suspect]
     Active Substance: INFLIXIMAB-DYYB
     Indication: COLITIS ULCERATIVE
     Dosage: 5 MG/KG, EVERY 6 WEEKS
     Route: 042
     Dates: start: 20161027, end: 20171212
  22. INFLECTRA [Suspect]
     Active Substance: INFLIXIMAB-DYYB
     Dosage: 410 MG, EVERY 6 WEEKS
     Route: 042
     Dates: start: 20181218
  23. INFLECTRA [Suspect]
     Active Substance: INFLIXIMAB-DYYB
     Dosage: 415 MG, EVERY 6 WEEKS
     Route: 042
     Dates: start: 20190827
  24. DIMENHYDRINATE. [Concomitant]
     Active Substance: DIMENHYDRINATE
     Dosage: 50 MG, UNK
     Dates: start: 20200624, end: 20200624
  25. METHYLPREDNISOLONE. [Concomitant]
     Active Substance: METHYLPREDNISOLONE
     Indication: PREMEDICATION
     Dosage: 100 MG
     Dates: start: 20200624
  26. INFLECTRA [Suspect]
     Active Substance: INFLIXIMAB-DYYB
     Dosage: 410 MG, EVERY 6 WEEKS
     Route: 042
     Dates: start: 20180123, end: 20181106
  27. INFLECTRA [Suspect]
     Active Substance: INFLIXIMAB-DYYB
     Dosage: 410 MG, EVERY 6 WEEKS
     Route: 042
     Dates: start: 20180227
  28. INFLECTRA [Suspect]
     Active Substance: INFLIXIMAB-DYYB
     Dosage: 415 MG, EVERY 6 WEEKS
     Route: 042
     Dates: start: 20190312
  29. CORTIMENT [Concomitant]
     Dosage: 9 MG, 1X/DAY
     Route: 048
     Dates: start: 201308

REACTIONS (10)
  - Intentional product use issue [Unknown]
  - Blood pressure increased [Unknown]
  - Heart rate irregular [Unknown]
  - Blood pressure fluctuation [Unknown]
  - Tooth impacted [Recovering/Resolving]
  - Off label use [Unknown]
  - Pain [Unknown]
  - Incorrect dose administered [Unknown]
  - Off label use [Unknown]
  - Condition aggravated [Unknown]

NARRATIVE: CASE EVENT DATE: 20161027
